FAERS Safety Report 20224098 (Version 2)
Quarter: 2022Q1

REPORT INFORMATION
  Report Type: Spontaneous
  Country: ES (occurrence: PL)
  Receive Date: 20211223
  Receipt Date: 20220110
  Transmission Date: 20220423
  Serious: Yes (Life-Threatening, Other)
  Sender: FDA-Public Use
  Company Number: PL-AstraZeneca-2021A631427

PATIENT
  Age: 63 Year
  Sex: Male

DRUGS (8)
  1. OMEPRAZOLE [Suspect]
     Active Substance: OMEPRAZOLE
     Indication: Product used for unknown indication
     Dosage: DOSE ACCUMULATE 35MG
     Route: 048
  2. OMEPRAZOLE [Suspect]
     Active Substance: OMEPRAZOLE
     Dosage: DOSE ACCUMULATE 35MG
     Route: 048
  3. DEXCHLORPHENIRAMINE [Suspect]
     Active Substance: DEXCHLORPHENIRAMINE
     Indication: Anaphylactic shock
     Dosage: 5 MILLIGRAM
     Route: 065
  4. METHYLPREDNISOLONE [Suspect]
     Active Substance: METHYLPREDNISOLONE
     Indication: Anaphylactic shock
     Dosage: 80 MILLIGRAM
  5. EPINEPHRINE [Suspect]
     Active Substance: EPINEPHRINE
     Indication: Anaphylactic shock
     Dosage: 5 MILLIGRAM
  6. EPINEPHRINE [Suspect]
     Active Substance: EPINEPHRINE
     Dosage: 3 MILLIGRAM
  7. HYDROCORTISONE [Suspect]
     Active Substance: HYDROCORTISONE
     Indication: Anaphylactic shock
     Dosage: 100 MILLIGRAM
  8. SALINE [Suspect]
     Active Substance: SODIUM CHLORIDE
     Indication: Anaphylactic shock
     Dosage: 500 MILLILITER

REACTIONS (3)
  - Anaphylactic reaction [Unknown]
  - Drug ineffective [Unknown]
  - Hypotension [Recovering/Resolving]
